FAERS Safety Report 24628647 (Version 2)
Quarter: 2024Q4

REPORT INFORMATION
  Report Type: Spontaneous
  Country: US (occurrence: US)
  Receive Date: 20241117
  Receipt Date: 20241204
  Transmission Date: 20250115
  Serious: No
  Sender: BAUSCH AND LOMB
  Company Number: US-BAUSCHBL-2024BNL037050

PATIENT
  Age: 82 Year
  Sex: Male

DRUGS (2)
  1. ZYLET [Suspect]
     Active Substance: LOTEPREDNOL ETABONATE\TOBRAMYCIN
     Indication: Blepharitis
     Route: 047
     Dates: start: 20241104, end: 20241104
  2. REFRESH CELLUVISC [Concomitant]
     Active Substance: CARBOXYMETHYLCELLULOSE SODIUM
     Indication: Product used for unknown indication

REACTIONS (9)
  - Ill-defined disorder [Unknown]
  - Pyrexia [Unknown]
  - Influenza like illness [Unknown]
  - Nausea [Unknown]
  - Feeding disorder [Unknown]
  - Burning sensation [Unknown]
  - Hypersensitivity [Unknown]
  - Headache [Recovering/Resolving]
  - Product communication issue [Unknown]

NARRATIVE: CASE EVENT DATE: 20241104
